FAERS Safety Report 18282072 (Version 1)
Quarter: 2020Q3

REPORT INFORMATION
  Report Type: Spontaneous
  Country: US (occurrence: US)
  Receive Date: 20200918
  Receipt Date: 20200918
  Transmission Date: 20201103
  Serious: Yes (Hospitalization)
  Sender: FDA-Public Use
  Company Number: None

PATIENT
  Age: 38 Year
  Sex: Male

DRUGS (3)
  1. AMLORIDE [Concomitant]
  2. SODIUM BICAR [Concomitant]
  3. ENVARSUS XR [Suspect]
     Active Substance: TACROLIMUS
     Indication: ORGAN TRANSPLANT
     Route: 048

REACTIONS (2)
  - Insomnia [None]
  - Tremor [None]

NARRATIVE: CASE EVENT DATE: 20200917
